FAERS Safety Report 6124019-8 (Version None)
Quarter: 2009Q1

REPORT INFORMATION
  Report Type: 
  Country: None (occurrence: None)
  Receive Date: 20090319
  Receipt Date: 20090309
  Transmission Date: 20090719
  Serious: Yes (Hospitalization)
  Sender: FDA-Public Use
  Company Number: DE-JNJFOC-20090302374

PATIENT
  Age: 54 Year
  Sex: Male

DRUGS (6)
  1. REMICADE [Suspect]
     Route: 042
  2. REMICADE [Suspect]
     Indication: PSORIATIC ARTHROPATHY
     Route: 042
  3. METHOTREXATE [Concomitant]
     Indication: PSORIASIS
     Route: 048
  4. PREDNISOLONE [Concomitant]
     Indication: PSORIASIS
     Route: 048
  5. INDOMETHACIN [Concomitant]
     Indication: PSORIASIS
  6. AMLODIPINE [Concomitant]
     Route: 048

REACTIONS (2)
  - INFUSION RELATED REACTION [None]
  - SHOCK [None]
